FAERS Safety Report 13165934 (Version 3)
Quarter: 2017Q1

REPORT INFORMATION
  Report Type: Report from Study
  Country: CO (occurrence: CO)
  Receive Date: 20170131
  Receipt Date: 20170330
  Transmission Date: 20170428
  Serious: Yes (Other)
  Sender: FDA-Public Use
  Company Number: CO-AMGEN-COLSL2017012322

PATIENT
  Age: 67 Year
  Sex: Female

DRUGS (3)
  1. DOXYCYCLINE. [Concomitant]
     Active Substance: DOXYCYCLINE
     Dosage: 100 MG, QD
  2. DESONIDE. [Concomitant]
     Active Substance: DESONIDE
     Dosage: UNK
  3. VECTIBIX [Suspect]
     Active Substance: PANITUMUMAB
     Indication: COLORECTAL CANCER METASTATIC
     Dosage: 360 MG, Q2WK (BIWEEKLY)
     Route: 042
     Dates: start: 20160408

REACTIONS (16)
  - Arthropathy [Not Recovered/Not Resolved]
  - Oral mucosal discolouration [Recovering/Resolving]
  - Anaemia [Not Recovered/Not Resolved]
  - Eye discharge [Not Recovered/Not Resolved]
  - Dry eye [Not Recovered/Not Resolved]
  - Eye irritation [Recovering/Resolving]
  - Xeroderma [Recovering/Resolving]
  - Xerophthalmia [Recovering/Resolving]
  - Rash [Recovering/Resolving]
  - Pruritus [Recovering/Resolving]
  - Ageusia [Recovering/Resolving]
  - Conjunctivitis [Recovering/Resolving]
  - Paronychia [Not Recovered/Not Resolved]
  - Weight decreased [Recovering/Resolving]
  - Erythema [Recovering/Resolving]
  - Stomatitis [Recovering/Resolving]

NARRATIVE: CASE EVENT DATE: 20160408
